FAERS Safety Report 13583393 (Version 1)
Quarter: 2017Q2

REPORT INFORMATION
  Report Type: Spontaneous
  Country: NL (occurrence: NL)
  Receive Date: 20170526
  Receipt Date: 20170526
  Transmission Date: 20170830
  Serious: Yes (Other)
  Sender: FDA-Public Use
  Company Number: NL-ROCHE-1939914

PATIENT
  Sex: Female

DRUGS (1)
  1. XOLAIR [Suspect]
     Active Substance: OMALIZUMAB
     Indication: BRONCHOPULMONARY ASPERGILLOSIS ALLERGIC
     Dosage: 150 MG, UNK (4 INJECTIONS)
     Route: 065

REACTIONS (5)
  - Infection parasitic [Unknown]
  - Off label use [Unknown]
  - Dark circles under eyes [Unknown]
  - Weight decreased [Unknown]
  - Blood immunoglobulin E increased [Unknown]
